FAERS Safety Report 4915225-6 (Version None)
Quarter: 2006Q1

REPORT INFORMATION
  Report Type: 
  Country: None (occurrence: None)
  Receive Date: 20060216
  Receipt Date: 20060216
  Transmission Date: 20060701
  Serious: Yes (Hospitalization)
  Sender: FDA-Public Use
  Company Number: None

PATIENT
  Sex: Male
  Weight: 86.637 kg

DRUGS (5)
  1. DIGOXIN [Suspect]
     Indication: ATRIAL FIBRILLATION
     Dosage: PO QD PRIOR TO ADMISSION
     Route: 048
  2. ATENOLOL [Concomitant]
  3. ENALAPRIL [Concomitant]
  4. COUMADIN [Concomitant]
  5. LASIX [Concomitant]

REACTIONS (4)
  - CARDIOACTIVE DRUG LEVEL DECREASED [None]
  - NAUSEA [None]
  - VERTIGO [None]
  - VOMITING [None]
